FAERS Safety Report 22160320 (Version 1)
Quarter: 2023Q1

REPORT INFORMATION
  Report Type: Spontaneous
  Country: US (occurrence: None)
  Receive Date: 20230330
  Receipt Date: 20230330
  Transmission Date: 20230417
  Serious: Yes (Hospitalization)
  Sender: FDA-Public Use
  Company Number: None

PATIENT
  Age: 91 Year
  Sex: Male
  Weight: 94.35 kg

DRUGS (30)
  1. ABIRATERONE ACETATE [Suspect]
     Active Substance: ABIRATERONE ACETATE
     Indication: Prostate cancer
     Dosage: FREQUENCY : DAILY;?
     Route: 048
     Dates: start: 202301
  2. ACETAMINOPHEN [Concomitant]
     Active Substance: ACETAMINOPHEN
  3. AMOXICILLIN [Concomitant]
  4. CALCIUM\VITAMIN D [Concomitant]
     Active Substance: CALCIUM\VITAMIN D
  5. CASODEX [Concomitant]
     Active Substance: BICALUTAMIDE
  6. CHONDROITIN SULFATE (BOVINE) [Concomitant]
     Active Substance: CHONDROITIN SULFATE (BOVINE)
  7. CIPROFLOXACIN [Concomitant]
  8. ELIQUIS [Concomitant]
     Active Substance: APIXABAN
  9. EUTHYROX [Concomitant]
     Active Substance: LEVOTHYROXINE SODIUM
  10. FERROUS SULFATE [Concomitant]
     Active Substance: FERROUS SULFATE
  11. FISH OIL [Concomitant]
     Active Substance: FISH OIL
  12. FLONASE [Concomitant]
     Active Substance: FLUTICASONE PROPIONATE
  13. GLIPIZIDE [Concomitant]
     Active Substance: GLIPIZIDE
  14. GLUCOSAMINE [Concomitant]
     Active Substance: GLUCOSAMINE
  15. IPRATROPIUM [Concomitant]
     Active Substance: IPRATROPIUM
  16. LASIX [Concomitant]
     Active Substance: FUROSEMIDE
  17. LISINOPRIL [Concomitant]
     Active Substance: LISINOPRIL
  18. LORATADINE [Concomitant]
     Active Substance: LORATADINE
  19. MELATONIN [Concomitant]
     Active Substance: MELATONIN
  20. METFORMIN [Concomitant]
  21. METOPROLOL [Concomitant]
  22. Multivitamin [Concomitant]
  23. MUPIROCIN [Concomitant]
  24. NITROGLYCERIN [Concomitant]
  25. OMEPRAZOLE [Concomitant]
     Active Substance: OMEPRAZOLE
  26. PREDNISONE [Concomitant]
     Active Substance: PREDNISONE
  27. Saw Palmetto [Concomitant]
  28. SIMVASTATIN [Concomitant]
  29. TAMSULOSIN [Concomitant]
     Active Substance: TAMSULOSIN
  30. VITAMIN C [Concomitant]
     Active Substance: ASCORBIC ACID

REACTIONS (1)
  - Fall [None]

NARRATIVE: CASE EVENT DATE: 20230329
